FAERS Safety Report 8694020 (Version 2)
Quarter: 2012Q4

REPORT INFORMATION
  Report Type: 
  Country: BR (occurrence: BR)
  Receive Date: 20120731
  Receipt Date: 20120830
  Transmission Date: 20130627
  Serious: Yes (Hospitalization, Other)
  Sender: FDA-Public Use
  Company Number: PHHY2012BR064793

PATIENT
  Sex: Female
  Weight: 87 kg

DRUGS (10)
  1. DIOVAN AMLO FIX [Suspect]
     Indication: HYPERTENSION
     Dosage: 0.5 to 1 DF (320/10 mg), Daily
  2. DIOVAN AMLO FIX [Suspect]
     Dosage: UNK UKN, UNK
  3. CHLORTHALIDONE [Suspect]
     Indication: HYPERTENSION
     Dosage: 50 mg, daily
     Route: 048
  4. TICLID [Concomitant]
     Indication: CARDIAC DISORDER
     Dosage: 250 mg, daily
     Route: 048
     Dates: start: 201201
  5. DIGOXINE [Concomitant]
     Indication: CARDIAC DISORDER
     Dosage: 0.25 mg, daily
     Route: 048
     Dates: start: 201201
  6. SOMALIUM CARDIO [Concomitant]
     Indication: ARRHYTHMIA
     Dosage: 200 mg, daily
     Route: 048
  7. ACETYLSALICYLIC ACID [Concomitant]
     Indication: ARRHYTHMIA
     Dosage: 100 mg, daily (when she did not use Somalium Cardio)
     Route: 048
     Dates: start: 201112
  8. SIMVASTATIN [Concomitant]
     Indication: BLOOD CHOLESTEROL
  9. OMEPRAZOLE [Concomitant]
     Dosage: 1 DF, daily
     Route: 048
  10. STUGERON [Concomitant]
     Dosage: UNK UKN, UNK

REACTIONS (10)
  - Pneumonia [Recovered/Resolved]
  - Malaise [Recovered/Resolved]
  - Asthenia [Recovering/Resolving]
  - Hyperhidrosis [Unknown]
  - Blood pressure decreased [Recovered/Resolved]
  - Abdominal discomfort [Recovered/Resolved]
  - Osteoporosis [Unknown]
  - Osteoarthritis [Unknown]
  - Dyspnoea [Recovering/Resolving]
  - Blood pressure abnormal [Recovered/Resolved]
